FAERS Safety Report 6725911-3 (Version None)
Quarter: 2010Q2

REPORT INFORMATION
  Report Type: 
  Country: None (occurrence: None)
  Receive Date: 20100514
  Receipt Date: 20100503
  Transmission Date: 20101027
  Serious: Yes (Other)
  Sender: FDA-Public Use
  Company Number: CA-JNJFOC-20100502295

PATIENT
  Sex: Male

DRUGS (6)
  1. CHILDREN'S MOTRIN [Suspect]
     Route: 048
  2. CHILDREN'S MOTRIN [Suspect]
     Indication: NASOPHARYNGITIS
     Route: 048
  3. CHILDREN'S MOTRIN [Suspect]
     Route: 048
  4. CHILDREN'S MOTRIN [Suspect]
     Indication: NASOPHARYNGITIS
     Route: 048
  5. CHILDREN'S TYLENOL [Suspect]
     Route: 048
  6. CHILDREN'S TYLENOL [Suspect]
     Indication: NASOPHARYNGITIS
     Route: 048

REACTIONS (2)
  - HEPATIC ENZYME INCREASED [None]
  - PRODUCT QUALITY ISSUE [None]
